FAERS Safety Report 7570330-3 (Version None)
Quarter: 2011Q2

REPORT INFORMATION
  Report Type: 
  Country: None (occurrence: None)
  Receive Date: 20110620
  Receipt Date: 20110614
  Transmission Date: 20111010
  Serious: Yes (Death, Hospitalization, Other)
  Sender: FDA-Public Use
  Company Number: 2011SP004402

PATIENT
  Age: 70 Year
  Sex: Female
  Weight: 40.1 kg

DRUGS (15)
  1. COTRIM [Concomitant]
  2. PURSENNID (SENNOSIDE) [Concomitant]
  3. PRIMPERAN TAB [Concomitant]
  4. FAMOTIDINE [Concomitant]
  5. PAXIL [Concomitant]
  6. MAGNESIUM SULFATE [Concomitant]
  7. TEGRETOL [Concomitant]
  8. PURSENNID (SENNOSIDE) [Concomitant]
  9. RADIOTHERAPY [Concomitant]
  10. TEMODAL [Suspect]
     Indication: GLIOBLASTOMA MULTIFORME
     Dosage: 100 MG;QD;PO
     Route: 048
     Dates: start: 20101129, end: 20110111
  11. PREDNISOLONE [Concomitant]
  12. DIAZEPAM [Concomitant]
  13. FERROUS CITRATE [Concomitant]
  14. MIYA BM [Concomitant]
  15. NAVOBAN [Concomitant]

REACTIONS (13)
  - RASH [None]
  - FEBRILE NEUTROPENIA [None]
  - PANCYTOPENIA [None]
  - PYREXIA [None]
  - RENAL FAILURE [None]
  - HAEMATURIA [None]
  - HAEMORRHAGIC DIATHESIS [None]
  - ANAEMIA [None]
  - MULTI-ORGAN FAILURE [None]
  - PNEUMONIA [None]
  - PURPURA [None]
  - ACTIVATED PARTIAL THROMBOPLASTIN TIME PROLONGED [None]
  - DISSEMINATED INTRAVASCULAR COAGULATION [None]
